FAERS Safety Report 5352684-1 (Version None)
Quarter: 2007Q2

REPORT INFORMATION
  Report Type: 
  Country: None (occurrence: None)
  Receive Date: 20070518
  Receipt Date: 20070313
  Transmission Date: 20071010
  Serious: No
  Sender: FDA-Public Use
  Company Number: TPA2007A00607

PATIENT
  Age: 67 Year
  Sex: Male
  Weight: 79.8331 kg

DRUGS (4)
  1. ROZEREM [Suspect]
     Indication: INSOMNIA
     Dosage: AS REQUIRED, PER ORAL
     Route: 048
     Dates: start: 20070307
  2. DETROL LA [Concomitant]
  3. LUPRON [Concomitant]
  4. MEGESTROL ACETATE [Concomitant]

REACTIONS (3)
  - FATIGUE [None]
  - POOR QUALITY SLEEP [None]
  - SOMNOLENCE [None]
